FAERS Safety Report 20291484 (Version 2)
Quarter: 2022Q1

REPORT INFORMATION
  Report Type: Spontaneous
  Country: US (occurrence: US)
  Receive Date: 20220104
  Receipt Date: 20220107
  Transmission Date: 20220423
  Serious: Yes (Other)
  Sender: FDA-Public Use
  Company Number: US-SANOFI-00912513

PATIENT
  Age: 74 Year
  Sex: Female
  Weight: 117.5 kg

DRUGS (12)
  1. DUPIXENT [Suspect]
     Active Substance: DUPILUMAB
     Indication: Dermatitis atopic
     Dosage: 600 MG, 1X
     Route: 058
     Dates: start: 20211210, end: 20211210
  2. DUPIXENT [Suspect]
     Active Substance: DUPILUMAB
     Indication: Psoriatic arthropathy
     Dosage: 300 MG, QOW
     Route: 058
     Dates: start: 20211210
  3. DUPIXENT [Suspect]
     Active Substance: DUPILUMAB
     Indication: Illness
  4. METHOTREXATE [Concomitant]
     Active Substance: METHOTREXATE
  5. PROLIA [Concomitant]
     Active Substance: DENOSUMAB
  6. CELEBREX [Concomitant]
     Active Substance: CELECOXIB
  7. PRILOSEC [Concomitant]
     Active Substance: OMEPRAZOLE MAGNESIUM
  8. CYMBALTA [Concomitant]
     Active Substance: DULOXETINE HYDROCHLORIDE
  9. FEMARA [Concomitant]
     Active Substance: LETROZOLE
  10. IBRANCE [Concomitant]
     Active Substance: PALBOCICLIB
  11. PLAQUENIL [Concomitant]
     Active Substance: HYDROXYCHLOROQUINE SULFATE
  12. OTEZLA [Concomitant]
     Active Substance: APREMILAST

REACTIONS (8)
  - Haemorrhage [Unknown]
  - Dermatitis atopic [Unknown]
  - Skin weeping [Unknown]
  - Pruritus [Unknown]
  - Dry skin [Unknown]
  - Skin fissures [Unknown]
  - Skin exfoliation [Unknown]
  - Product use in unapproved indication [Unknown]

NARRATIVE: CASE EVENT DATE: 20211201
